FAERS Safety Report 20902725 (Version 1)
Quarter: 2022Q2

REPORT INFORMATION
  Report Type: Spontaneous
  Country: FR (occurrence: FR)
  Receive Date: 20220601
  Receipt Date: 20220601
  Transmission Date: 20220721
  Serious: Yes (Hospitalization, Disabling, Congenital Anomaly, Other)
  Sender: FDA-Public Use
  Company Number: FR-ABBVIE-22K-056-4416546-00

PATIENT
  Age: 9 Week
  Sex: Male

DRUGS (4)
  1. VALPROATE SODIUM [Suspect]
     Active Substance: VALPROATE SODIUM
     Indication: Maternal exposure timing unspecified
     Route: 064
  2. VALPROATE SODIUM [Suspect]
     Active Substance: VALPROATE SODIUM
     Route: 064
  3. PHENOBARBITAL [Concomitant]
     Active Substance: PHENOBARBITAL
     Indication: Maternal exposure timing unspecified
  4. CLOBAZAM [Concomitant]
     Active Substance: CLOBAZAM
     Indication: Maternal exposure timing unspecified

REACTIONS (38)
  - Hypotonia [Unknown]
  - Bronchiolitis [Unknown]
  - Dysmorphism [Unknown]
  - Hypertelorism [Unknown]
  - Foot deformity [Unknown]
  - Congenital hand malformation [Unknown]
  - Hip deformity [Unknown]
  - Hydrocele [Unknown]
  - Cryptorchism [Unknown]
  - Scoliosis [Unknown]
  - Kyphosis [Unknown]
  - Lordosis [Unknown]
  - Radiculopathy [Unknown]
  - Congenital musculoskeletal disorder of limbs [Unknown]
  - Prognathism [Unknown]
  - Carpal tunnel syndrome [Unknown]
  - Educational problem [Unknown]
  - Enuresis [Unknown]
  - Behaviour disorder [Unknown]
  - Learning disorder [Unknown]
  - Emotional disorder [Unknown]
  - Language disorder [Unknown]
  - Dyscalculia [Unknown]
  - Dyslexia [Unknown]
  - Cognitive disorder [Unknown]
  - Disorientation [Unknown]
  - Intellectual disability [Unknown]
  - Autonomic nervous system imbalance [Unknown]
  - Disturbance in attention [Unknown]
  - Social anxiety disorder [Unknown]
  - Inguinal hernia [Unknown]
  - Fatigue [Unknown]
  - Eyelid ptosis [Unknown]
  - Ear infection [Unknown]
  - Anxiety [Unknown]
  - Bronchitis [Unknown]
  - Tonsillitis [Unknown]
  - Foetal exposure during pregnancy [Unknown]

NARRATIVE: CASE EVENT DATE: 19870820
